FAERS Safety Report 7334952-7 (Version None)
Quarter: 2011Q1

REPORT INFORMATION
  Report Type: 
  Country: None (occurrence: None)
  Receive Date: 20110307
  Receipt Date: 20110303
  Transmission Date: 20110831
  Serious: No
  Sender: FDA-Public Use
  Company Number: FR-ROCHE-758138

PATIENT
  Sex: Male
  Weight: 37 kg

DRUGS (4)
  1. ACETAMINOPHEN [Concomitant]
     Indication: PAIN
     Dosage: INDICATION: PAIN AND FEVER
     Route: 048
  2. TAMIFLU [Suspect]
     Dosage: 75MG TWICE ONE DAY
     Route: 048
     Dates: start: 20110128
  3. IBUPROFEN [Concomitant]
     Indication: PAIN
     Dosage: INDICATION: PAIN AND FEVER
     Route: 048
  4. TAMIFLU [Suspect]
     Dosage: NEXT DAY RECEIVED AT GOOD DOSAGE
     Route: 048

REACTIONS (2)
  - NO ADVERSE EVENT [None]
  - OVERDOSE [None]
